FAERS Safety Report 12159435 (Version 1)
Quarter: 2016Q1

REPORT INFORMATION
  Report Type: Report from Study
  Country: JP (occurrence: JP)
  Receive Date: 20160308
  Receipt Date: 20160308
  Transmission Date: 20160526
  Serious: Yes (Hospitalization, Other)
  Sender: FDA-Public Use
  Company Number: JP-VIIV HEALTHCARE LIMITED-A201300466

PATIENT
  Sex: Male
  Weight: 63 kg

DRUGS (38)
  1. MARAVIROC [Suspect]
     Active Substance: MARAVIROC
     Indication: HIV INFECTION
     Route: 048
     Dates: start: 20110615, end: 20130804
  2. AMLODIN [Concomitant]
     Active Substance: AMLODIPINE BESYLATE
     Dosage: 10 MG, QD
     Route: 048
     Dates: start: 20111212
  3. XALATAN [Concomitant]
     Active Substance: LATANOPROST
     Indication: OCULAR HYPERTENSION
     Route: 031
     Dates: start: 20130225
  4. BAYASPIRIN [Concomitant]
     Active Substance: ASPIRIN
     Indication: CEREBRAL INFARCTION
     Route: 048
     Dates: start: 20120401
  5. MARAVIROC [Suspect]
     Active Substance: MARAVIROC
     Dosage: 600 MG, UNK
     Dates: start: 20130805, end: 20130908
  6. MARAVIROC [Suspect]
     Active Substance: MARAVIROC
     Dosage: 1200 MG, UNK
     Dates: start: 20131007
  7. INTELENCE [Suspect]
     Active Substance: ETRAVIRINE
     Dosage: 400 MG, UNK
     Dates: start: 20130512
  8. VIRAMUNE [Concomitant]
     Active Substance: NEVIRAPINE
     Route: 048
     Dates: start: 20060213, end: 20060226
  9. AMLODIN [Concomitant]
     Active Substance: AMLODIPINE BESYLATE
     Indication: HYPERTENSION
     Dosage: 5 MG, QD
     Route: 048
     Dates: start: 20111114, end: 20111211
  10. TIMOPTOL [Concomitant]
     Active Substance: TIMOLOL
     Indication: OCULAR HYPERTENSION
     Dosage: 1 DF, BID
     Route: 031
     Dates: start: 20130314, end: 20130401
  11. ALOSITOL [Concomitant]
     Active Substance: ALLOPURINOL
     Indication: HYPERURICAEMIA
     Route: 048
     Dates: start: 20120401
  12. MARAVIROC [Suspect]
     Active Substance: MARAVIROC
     Dosage: 300 MG, UNK
     Dates: start: 20130930, end: 20131006
  13. INTELENCE [Suspect]
     Active Substance: ETRAVIRINE
     Indication: HIV INFECTION
     Route: 048
     Dates: start: 20110615, end: 20130512
  14. VIREAD [Concomitant]
     Active Substance: TENOFOVIR DISOPROXIL FUMARATE
     Indication: HIV INFECTION
     Route: 048
     Dates: end: 20110614
  15. FUROSEMIDE. [Concomitant]
     Active Substance: FUROSEMIDE
     Indication: HYPERKALAEMIA
     Dosage: 20 MG, QD
     Route: 065
     Dates: start: 20120320
  16. FUROSEMIDE. [Concomitant]
     Active Substance: FUROSEMIDE
     Indication: HYPERKALAEMIA
     Dosage: 20 MG, QD
     Route: 065
     Dates: start: 20120220, end: 20120319
  17. VIRAMUNE [Concomitant]
     Active Substance: NEVIRAPINE
     Route: 048
     Dates: start: 20060313, end: 20060326
  18. TAMBOCOR [Concomitant]
     Active Substance: FLECAINIDE ACETATE
     Indication: ATRIAL FIBRILLATION
     Route: 065
     Dates: start: 20110620, end: 20130107
  19. AVASTIN [Concomitant]
     Active Substance: BEVACIZUMAB
     Indication: GLAUCOMA
     Route: 041
     Dates: start: 20130326, end: 20130326
  20. VIRAMUNE [Concomitant]
     Active Substance: NEVIRAPINE
     Indication: HIV INFECTION
     Route: 048
     Dates: start: 20060130, end: 20060212
  21. VIRAMUNE [Concomitant]
     Active Substance: NEVIRAPINE
     Route: 048
     Dates: start: 20060410, end: 20110614
  22. VIRACEPT [Concomitant]
     Active Substance: NELFINAVIR MESYLATE
     Indication: HIV INFECTION
     Route: 048
     Dates: end: 20110614
  23. OLMETEC [Suspect]
     Active Substance: OLMESARTAN MEDOXOMIL
     Route: 048
     Dates: start: 20110615, end: 20110628
  24. VIRAMUNE [Concomitant]
     Active Substance: NEVIRAPINE
     Route: 048
     Dates: start: 20060227, end: 20060312
  25. FLUITRAN [Concomitant]
     Active Substance: TRICHLORMETHIAZIDE
     Indication: HYPERTENSION
     Route: 048
     Dates: start: 20120206, end: 20120402
  26. DIAMOX SEQUELS [Concomitant]
     Active Substance: ACETAZOLAMIDE
     Indication: OCULAR HYPERTENSION
     Dosage: 250 MG, BID
     Route: 065
     Dates: start: 20130326, end: 20130401
  27. ASPARA POTASSIUM [Concomitant]
     Active Substance: POTASSIUM ASPARTATE
     Indication: PROPHYLAXIS
     Dosage: 300 MG, BID
     Route: 065
     Dates: start: 20130327, end: 20130401
  28. TRUSOPT [Concomitant]
     Active Substance: DORZOLAMIDE HYDROCHLORIDE
     Indication: OCULAR HYPERTENSION
     Dosage: 1 DF, TID
     Route: 031
     Dates: start: 20130314, end: 20130401
  29. LACTEC [Concomitant]
     Active Substance: CALCIUM CHLORIDE ANHYDROUS\POTASSIUM CHLORIDE\SODIUM CHLORIDE\SODIUM LACTATE
     Indication: GASTROENTERITIS
     Route: 041
     Dates: start: 20120220, end: 20120220
  30. MARAVIROC [Suspect]
     Active Substance: MARAVIROC
     Dosage: 1200 MG, UNK
     Dates: start: 20130909, end: 20130929
  31. ISENTRESS [Suspect]
     Active Substance: RALTEGRAVIR POTASSIUM
     Indication: HIV INFECTION
     Route: 048
     Dates: start: 20110615
  32. VASOLAN [Concomitant]
     Active Substance: VERAPAMIL HYDROCHLORIDE
     Indication: ATRIAL FIBRILLATION
     Route: 065
     Dates: end: 20110530
  33. TENORMIN [Concomitant]
     Active Substance: ATENOLOL
     Indication: ATRIAL FIBRILLATION
     Route: 048
     Dates: start: 20110531, end: 20110619
  34. OLMETEC [Suspect]
     Active Substance: OLMESARTAN MEDOXOMIL
     Route: 048
     Dates: start: 20110629, end: 20121217
  35. DIAMOX SEQUELS [Concomitant]
     Active Substance: ACETAZOLAMIDE
     Indication: VITREOUS HAEMORRHAGE
     Route: 065
     Dates: start: 20130305, end: 20130314
  36. VIRAMUNE [Concomitant]
     Active Substance: NEVIRAPINE
     Route: 048
     Dates: start: 20060327, end: 20060409
  37. OLMETEC [Suspect]
     Active Substance: OLMESARTAN MEDOXOMIL
     Indication: HYPERTENSION
     Route: 048
     Dates: start: 20110531, end: 20110614
  38. SUNRYTHM [Concomitant]
     Active Substance: PILSICAINIDE HYDROCHLORIDE
     Indication: ATRIAL FIBRILLATION
     Dosage: 50 MG, TID
     Route: 065
     Dates: start: 20130315

REACTIONS (9)
  - Vitreous haemorrhage [Recovered/Resolved]
  - Hyperkalaemia [Recovered/Resolved]
  - Gastroenteritis [Recovering/Resolving]
  - Vitrectomy [Unknown]
  - Lenticular operation [Unknown]
  - Dermatophytosis of nail [Recovered/Resolved]
  - Glaucoma [Recovering/Resolving]
  - Hyperuricaemia [Recovering/Resolving]
  - Cerebral infarction [Recovering/Resolving]

NARRATIVE: CASE EVENT DATE: 20110629
